FAERS Safety Report 11613523 (Version 2)
Quarter: 2016Q1

REPORT INFORMATION
  Report Type: Spontaneous
  Country: US (occurrence: US)
  Receive Date: 20151008
  Receipt Date: 20160107
  Transmission Date: 20160525
  Serious: Yes (Death, Other)
  Sender: FDA-Public Use
  Company Number: US-PFIZER INC-2015334087

PATIENT
  Age: 85 Year
  Sex: Female
  Weight: 68.27 kg

DRUGS (1)
  1. REVATIO [Suspect]
     Active Substance: SILDENAFIL CITRATE
     Indication: PULMONARY HYPERTENSION
     Dosage: 20 MG TABLET, 2 PILLS, THREE TIMES A DAY
     Dates: start: 201503, end: 201508

REACTIONS (4)
  - Lung disorder [Fatal]
  - Product use issue [Recovered/Resolved]
  - Dysphagia [Unknown]
  - Cardiac failure congestive [Fatal]

NARRATIVE: CASE EVENT DATE: 201503
